FAERS Safety Report 24016425 (Version 1)
Quarter: 2024Q2

REPORT INFORMATION
  Report Type: Spontaneous
  Country: US (occurrence: None)
  Receive Date: 20240626
  Receipt Date: 20240626
  Transmission Date: 20240715
  Serious: No
  Sender: FDA-Public Use
  Company Number: None

PATIENT
  Age: 57 Year
  Sex: Female

DRUGS (1)
  1. XELJANZ [Suspect]
     Active Substance: TOFACITINIB CITRATE
     Indication: Rheumatoid arthritis
     Dosage: 5 MG TWICE A DAY ORAL
     Route: 048
     Dates: start: 20240513, end: 20240604

REACTIONS (4)
  - Headache [None]
  - Chills [None]
  - Abdominal discomfort [None]
  - Therapy cessation [None]

NARRATIVE: CASE EVENT DATE: 20240513
